FAERS Safety Report 22211733 (Version 1)
Quarter: 2023Q2

REPORT INFORMATION
  Report Type: Spontaneous
  Country: US (occurrence: US)
  Receive Date: 20230414
  Receipt Date: 20230414
  Transmission Date: 20230721
  Serious: No
  Sender: FDA-Public Use
  Company Number: US-VER-202200138

PATIENT

DRUGS (1)
  1. TRELSTAR [Suspect]
     Active Substance: TRIPTORELIN PAMOATE
     Indication: Product used for unknown indication
     Route: 065
     Dates: start: 20220503

REACTIONS (3)
  - Product communication issue [Unknown]
  - Prostatic specific antigen increased [Unknown]
  - Blood testosterone increased [Unknown]

NARRATIVE: CASE EVENT DATE: 20220706
